FAERS Safety Report 8927702 (Version 1)
Quarter: 2012Q4

REPORT INFORMATION
  Report Type: Report from Study
  Country: DE (occurrence: DE)
  Receive Date: 20121127
  Receipt Date: 20121127
  Transmission Date: 20130627
  Serious: Yes (Hospitalization)
  Sender: FDA-Public Use
  Company Number: PHHO2012DE015576

PATIENT
  Age: 57 Year
  Sex: Female
  Weight: 52.1 kg

DRUGS (2)
  1. AMN107 [Suspect]
     Indication: ACUTE LYMPHOCYTIC LEUKAEMIA
     Dosage: 400 mg, BID
     Route: 048
     Dates: start: 20120929
  2. VINCRISTINE [Concomitant]
     Indication: ACUTE LYMPHOCYTIC LEUKAEMIA
     Dosage: 1 mg, UNK
     Route: 042
     Dates: start: 20121020, end: 20121020

REACTIONS (1)
  - Faecaloma [Recovered/Resolved]
